FAERS Safety Report 4414148-9 (Version None)
Quarter: 2004Q3

REPORT INFORMATION
  Report Type: 
  Country: None (occurrence: None)
  Receive Date: 20040729
  Receipt Date: 20040716
  Transmission Date: 20050211
  Serious: Yes (Other)
  Sender: FDA-Public Use
  Company Number: 04-00387

PATIENT

DRUGS (2)
  1. ACYCLOVIR [Suspect]
     Indication: CYTOMEGALOVIRUS INFECTION
     Dosage: 800 MG, 1 EVERY 6 HOURS, ORAL
     Route: 048
  2. ACYCLOVIR [Suspect]
     Indication: PROPHYLAXIS
     Dosage: 800 MG, 1 EVERY 6 HOURS, ORAL
     Route: 048

REACTIONS (1)
  - CYTOMEGALOVIRUS SYNDROME [None]
